FAERS Safety Report 11198087 (Version 2)
Quarter: 2015Q2

REPORT INFORMATION
  Report Type: Report from Study
  Country: KR (occurrence: KR)
  Receive Date: 20150617
  Receipt Date: 20150624
  Transmission Date: 20150821
  Serious: Yes (Hospitalization)
  Sender: FDA-Public Use
  Company Number: KR-009507513-1406KOR003594

PATIENT
  Age: 61 Year
  Sex: Female

DRUGS (10)
  1. BOCEPREVIR [Suspect]
     Active Substance: BOCEPREVIR
     Indication: HEPATITIS C
     Dosage: TOTAL DAILY DOSE: 1200 MG
     Route: 048
     Dates: start: 20140107, end: 20140603
  2. BOCEPREVIR [Suspect]
     Active Substance: BOCEPREVIR
     Dosage: TOTAL DAILY DOSE: 1200 MG
     Route: 048
     Dates: start: 20140611, end: 20141111
  3. RIBAVIRIN. [Suspect]
     Active Substance: RIBAVIRIN
     Dosage: 200 MG, QD
     Route: 048
     Dates: start: 20140624, end: 20140818
  4. RIBAVIRIN. [Suspect]
     Active Substance: RIBAVIRIN
     Indication: HEPATITIS C
     Dosage: TOTAL DAILY DOSE: 1000 MG
     Route: 048
     Dates: start: 20131209, end: 20140303
  5. RIBAVIRIN. [Suspect]
     Active Substance: RIBAVIRIN
     Dosage: TOTAL DAILY DOSE: 800 MG
     Route: 048
     Dates: start: 20140304, end: 20140604
  6. PEGINTRON [Suspect]
     Active Substance: PEGINTERFERON ALFA-2B
     Indication: HEPATITIS C
     Dosage: 100 MCG, QD, FORMULATION: SYRINGE
     Route: 058
     Dates: start: 20131209, end: 20140329
  7. PEGINTRON [Suspect]
     Active Substance: PEGINTERFERON ALFA-2B
     Dosage: 80 MCG, QD, FORMULATION: SYRINGE
     Route: 058
     Dates: start: 20140401, end: 20140604
  8. PEGINTRON [Suspect]
     Active Substance: PEGINTERFERON ALFA-2B
     Dosage: 80 MCG, QD, FORMULATION: SYRINGE
     Route: 058
     Dates: start: 201406, end: 20141111
  9. RIBAVIRIN. [Suspect]
     Active Substance: RIBAVIRIN
     Dosage: TOTAL DAILY DOSE: 800 MG
     Route: 048
     Dates: start: 201406, end: 20140623
  10. RIBAVIRIN. [Suspect]
     Active Substance: RIBAVIRIN
     Dosage: 400 MG, QD
     Route: 048
     Dates: start: 20140819, end: 20141111

REACTIONS (12)
  - Pain [Recovered/Resolved]
  - Influenza like illness [Recovered/Resolved]
  - Oropharyngeal pain [Recovered/Resolved]
  - Nausea [Recovered/Resolved]
  - Hypophagia [Recovered/Resolved]
  - Nausea [Recovered/Resolved]
  - Glaucoma [Recovered/Resolved]
  - Eructation [Recovered/Resolved]
  - Asthenia [Recovered/Resolved]
  - Epigastric discomfort [Recovered/Resolved]
  - Face oedema [Recovered/Resolved]
  - Myopia [Recovered/Resolved]

NARRATIVE: CASE EVENT DATE: 20131209
